FAERS Safety Report 6534791-0 (Version None)
Quarter: 2010Q1

REPORT INFORMATION
  Report Type: 
  Country: None (occurrence: None)
  Receive Date: 20100112
  Receipt Date: 20100111
  Transmission Date: 20100710
  Serious: Yes (Other)
  Sender: FDA-Public Use
  Company Number: US-ELI_LILLY_AND_COMPANY-US200912001708

PATIENT
  Age: 34 Year
  Sex: Male

DRUGS (4)
  1. HUMALOG [Suspect]
     Indication: DIABETES MELLITUS
     Dosage: UNK, AS NEEDED
     Dates: start: 20020301
  2. LISINOPRIL [Concomitant]
  3. LIPITOR [Concomitant]
  4. LANTUS [Concomitant]
     Dosage: 10 U, 2/D

REACTIONS (2)
  - BLINDNESS [None]
  - DEVICE MISUSE [None]
